FAERS Safety Report 25411846 (Version 1)
Quarter: 2025Q2

REPORT INFORMATION
  Report Type: Spontaneous
  Country: JP (occurrence: JP)
  Receive Date: 20250609
  Receipt Date: 20250609
  Transmission Date: 20250716
  Serious: Yes (Death)
  Sender: STRIDES
  Company Number: JP-STRIDES ARCOLAB LIMITED-2025SP007016

PATIENT
  Age: 53 Year
  Sex: Female

DRUGS (8)
  1. PREDNISOLONE [Suspect]
     Active Substance: PREDNISOLONE
     Indication: Pyrexia
     Route: 065
  2. PREDNISOLONE [Suspect]
     Active Substance: PREDNISOLONE
     Indication: Lung disorder
  3. PREDNISOLONE [Suspect]
     Active Substance: PREDNISOLONE
     Indication: Oral disorder
  4. PREDNISOLONE [Suspect]
     Active Substance: PREDNISOLONE
     Indication: Gastrointestinal ulcer
  5. METHYLPREDNISOLONE [Suspect]
     Active Substance: METHYLPREDNISOLONE
     Indication: Pyrexia
     Route: 065
  6. METHYLPREDNISOLONE [Suspect]
     Active Substance: METHYLPREDNISOLONE
     Indication: Lung disorder
  7. METHYLPREDNISOLONE [Suspect]
     Active Substance: METHYLPREDNISOLONE
     Indication: Oral disorder
  8. METHYLPREDNISOLONE [Suspect]
     Active Substance: METHYLPREDNISOLONE
     Indication: Gastrointestinal ulcer

REACTIONS (1)
  - Drug ineffective for unapproved indication [Fatal]
